FAERS Safety Report 4927795-2 (Version None)
Quarter: 2006Q1

REPORT INFORMATION
  Report Type: 
  Country: None (occurrence: None)
  Receive Date: 20060127
  Receipt Date: 20051228
  Transmission Date: 20060701
  Serious: Yes (Other)
  Sender: FDA-Public Use
  Company Number: 2006001248

PATIENT
  Age: 52 Year
  Sex: Female
  Weight: 108.8633 kg

DRUGS (8)
  1. LYRICA                (PREGABALIN) [Suspect]
     Indication: PAIN IN EXTREMITY
     Dosage: 75 MG (75 MG, 1 IN 1 D), ORAL
     Route: 048
     Dates: start: 20051201
  2. PREDNISONE TAB [Suspect]
     Indication: ILL-DEFINED DISORDER
     Route: 065
  3. LEVOTHYROXINE SODIUM [Suspect]
     Indication: ILL-DEFINED DISORDER
     Route: 065
  4. BUMEX [Suspect]
     Indication: ILL-DEFINED DISORDER
     Route: 065
  5. PROZAC [Suspect]
     Indication: ILL-DEFINED DISORDER
     Route: 065
  6. VERAPAMIL [Concomitant]
  7. EFFEXOR [Concomitant]
  8. K-DUR 10 [Concomitant]

REACTIONS (3)
  - DRUG INTERACTION [None]
  - HEADACHE [None]
  - PAIN IN EXTREMITY [None]
